FAERS Safety Report 17705380 (Version 2)
Quarter: 2020Q2

REPORT INFORMATION
  Report Type: Report from Study
  Country: ZA (occurrence: ZA)
  Receive Date: 20200424
  Receipt Date: 20200518
  Transmission Date: 20200714
  Serious: Yes (Death)
  Sender: FDA-Public Use
  Company Number: ZA-ASTRAZENECA-2020SE53800

PATIENT
  Age: 25609 Day
  Sex: Male

DRUGS (7)
  1. SPIRACTIN [Concomitant]
     Dosage: 25.0MG UNKNOWN
  2. CORALAN [Concomitant]
     Active Substance: IVABRADINE HYDROCHLORIDE
     Dosage: 7.5MG UNKNOWN
  3. STORWIN [Concomitant]
     Active Substance: ROSUVASTATIN CALCIUM
     Dosage: 10.0MG UNKNOWN
  4. PD CLOPIDOGREL [Concomitant]
     Active Substance: CLOPIDOGREL BISULFATE
     Dosage: 75.0MG UNKNOWN
  5. ECOTRIN [Concomitant]
     Active Substance: ASPIRIN
     Dosage: 81.0MG UNKNOWN
  6. FARXIGA [Suspect]
     Active Substance: DAPAGLIFLOZIN PROPANEDIOL
     Indication: DIABETES MELLITUS
     Dosage: 10.0MG UNKNOWN
     Route: 048
     Dates: end: 20200408
  7. DIAGLUCIDE [Concomitant]
     Active Substance: GLICLAZIDE
     Dosage: 60.0MG UNKNOWN

REACTIONS (1)
  - Myocardial infarction [Fatal]

NARRATIVE: CASE EVENT DATE: 20200408
